FAERS Safety Report 17093611 (Version 1)
Quarter: 2019Q4

REPORT INFORMATION
  Report Type: Spontaneous
  Country: CN (occurrence: CN)
  Receive Date: 20191129
  Receipt Date: 20191129
  Transmission Date: 20200122
  Serious: Yes (Other)
  Sender: FDA-Public Use
  Company Number: CN-ASTRAZENECA-2019SF64284

PATIENT
  Age: 43 Year
  Sex: Female
  Weight: 62 kg

DRUGS (1)
  1. SYMBICORT [Suspect]
     Active Substance: BUDESONIDE\FORMOTEROL FUMARATE DIHYDRATE
     Dosage: TWICE A DAY, AND THEN ONCE A DAY, AND IT WAS ADJUSTED TO ONCE EVERY TWO DAYS IN THE LAST 1-2 YEARS
     Route: 055

REACTIONS (7)
  - Drug ineffective [Recovered/Resolved]
  - Speech disorder [Unknown]
  - Dyspnoea [Unknown]
  - Increased viscosity of bronchial secretion [Not Recovered/Not Resolved]
  - Asphyxia [Unknown]
  - Pharyngeal inflammation [Unknown]
  - Condition aggravated [Recovered/Resolved]

NARRATIVE: CASE EVENT DATE: 201907
